FAERS Safety Report 18868776 (Version 1)
Quarter: 2021Q1

REPORT INFORMATION
  Report Type: Report from Study
  Country: US (occurrence: US)
  Receive Date: 20210209
  Receipt Date: 20210209
  Transmission Date: 20210420
  Serious: Yes (Other)
  Sender: FDA-Public Use
  Company Number: US-JAZZ-2021-US-001990

PATIENT
  Sex: Female

DRUGS (4)
  1. XYREM [Suspect]
     Active Substance: SODIUM OXYBATE
     Indication: NARCOLEPSY
     Dosage: 1.5 GRAM, BID
     Route: 048
     Dates: start: 201309, end: 201310
  2. XYREM [Suspect]
     Active Substance: SODIUM OXYBATE
     Dosage: 4.5 GRAM, BID
     Route: 048
     Dates: start: 201405
  3. OMEPRAZOLE. [Suspect]
     Active Substance: OMEPRAZOLE
     Indication: PRODUCT USED FOR UNKNOWN INDICATION
  4. XYREM [Suspect]
     Active Substance: SODIUM OXYBATE
     Indication: CATAPLEXY
     Dosage: 1.5 GRAM, BID
     Route: 048
     Dates: start: 201404, end: 201405

REACTIONS (6)
  - Bone disorder [Unknown]
  - Sinus disorder [Unknown]
  - Varicose vein [Not Recovered/Not Resolved]
  - Abdominal discomfort [Unknown]
  - Skin lesion [Not Recovered/Not Resolved]
  - Memory impairment [Recovering/Resolving]
